FAERS Safety Report 7406214-0 (Version None)
Quarter: 2011Q2

REPORT INFORMATION
  Report Type: 
  Country: None (occurrence: None)
  Receive Date: 20110406
  Receipt Date: 20110406
  Transmission Date: 20111010
  Serious: Yes (Life-Threatening, Hospitalization)
  Sender: FDA-Public Use
  Company Number: None

PATIENT
  Age: 68 Year
  Sex: Male
  Weight: 107 kg

DRUGS (1)
  1. METHOCARBAMOL [Suspect]
     Dosage: MG PO
     Route: 048
     Dates: start: 20101221, end: 20110315

REACTIONS (2)
  - BRADYCARDIA [None]
  - SYNCOPE [None]
